FAERS Safety Report 5699212-9 (Version None)
Quarter: 2008Q2

REPORT INFORMATION
  Report Type: 
  Country: None (occurrence: None)
  Receive Date: 20080407
  Receipt Date: 20080407
  Transmission Date: 20081010
  Serious: No
  Sender: FDA-Public Use
  Company Number: None

PATIENT
  Age: 82 Year
  Sex: Female

DRUGS (10)
  1. CEFAZOLIN [Suspect]
     Dates: start: 20070712, end: 20070712
  2. SYNTHROID [Concomitant]
  3. HYDROCHLOROTHIAZIDE [Concomitant]
  4. EXCEDERIN [Concomitant]
  5. GLUCOSAMINE [Concomitant]
  6. CENTRUM SILVER [Concomitant]
  7. OSCAL WITH D [Concomitant]
  8. FOSAMAX [Concomitant]
  9. MOTRIN [Concomitant]
  10. VICODIN [Concomitant]

REACTIONS (3)
  - CHOLESTASIS [None]
  - LIVER INJURY [None]
  - WEIGHT DECREASED [None]
